FAERS Safety Report 6385600-4 (Version None)
Quarter: 2009Q4

REPORT INFORMATION
  Report Type: 
  Country: None (occurrence: None)
  Receive Date: 20091002
  Receipt Date: 20090922
  Transmission Date: 20100525
  Serious: Yes (Other)
  Sender: FDA-Public Use
  Company Number: AU-EISAI INC.-E3810-02824-SPO-AU

PATIENT
  Sex: Male

DRUGS (2)
  1. PARIET (RABEPRAZOLE) [Suspect]
     Route: 048
  2. CORTISONE [Concomitant]
     Dosage: UNKNOWN

REACTIONS (4)
  - NEPHRITIS ALLERGIC [None]
  - NEUROPATHY PERIPHERAL [None]
  - RENAL FAILURE [None]
  - TUBULOINTERSTITIAL NEPHRITIS [None]
